FAERS Safety Report 12723389 (Version 1)
Quarter: 2016Q3

REPORT INFORMATION
  Report Type: Spontaneous
  Country: US (occurrence: US)
  Receive Date: 20160908
  Receipt Date: 20160908
  Transmission Date: 20161109
  Serious: No
  Sender: FDA-Public Use
  Company Number: US-TEVA-680644USA

PATIENT
  Age: 52 Year
  Sex: Female

DRUGS (8)
  1. ESTRACE [Concomitant]
     Active Substance: ESTRADIOL
  2. VITAMIN D [Concomitant]
     Active Substance: CHOLECALCIFEROL
  3. FLAX [Concomitant]
  4. ADDERALL XR [Concomitant]
     Active Substance: AMPHETAMINE ASPARTATE\AMPHETAMINE SULFATE\DEXTROAMPHETAMINE SACCHARATE\DEXTROAMPHETAMINE SULFATE
  5. VITAMIN B [Concomitant]
     Active Substance: VITAMIN B
  6. CALCIUM [Concomitant]
     Active Substance: CALCIUM
  7. COPAXONE [Suspect]
     Active Substance: GLATIRAMER ACETATE
     Indication: MULTIPLE SCLEROSIS
     Route: 058
     Dates: start: 20150925
  8. VALTREX [Concomitant]
     Active Substance: VALACYCLOVIR HYDROCHLORIDE

REACTIONS (2)
  - Drug dose omission [Unknown]
  - Memory impairment [Unknown]

NARRATIVE: CASE EVENT DATE: 201607
